FAERS Safety Report 24194641 (Version 1)
Quarter: 2024Q3

REPORT INFORMATION
  Report Type: Report from Study
  Country: US (occurrence: None)
  Receive Date: 20240809
  Receipt Date: 20240809
  Transmission Date: 20241016
  Serious: Yes (Hospitalization)
  Sender: ASTRAZENECA
  Company Number: 2024A175816

PATIENT
  Sex: Male

DRUGS (2)
  1. CALQUENCE [Suspect]
     Active Substance: ACALABRUTINIB
     Indication: B-cell lymphoma unclassifiable
     Route: 048
     Dates: start: 20240206
  2. TAMSULOSIN [Suspect]
     Active Substance: TAMSULOSIN

REACTIONS (2)
  - Chest pain [Unknown]
  - Drug hypersensitivity [Unknown]
